FAERS Safety Report 16654733 (Version 1)
Quarter: 2019Q3

REPORT INFORMATION
  Report Type: Spontaneous
  Country: US (occurrence: US)
  Receive Date: 20190801
  Receipt Date: 20190801
  Transmission Date: 20191004
  Serious: No
  Sender: FDA-Public Use
  Company Number: US-LEO PHARMA-323449

PATIENT
  Sex: Female

DRUGS (1)
  1. PICATO [Suspect]
     Active Substance: INGENOL MEBUTATE
     Indication: ACTINIC KERATOSIS
     Route: 061

REACTIONS (5)
  - Application site vesicles [Not Recovered/Not Resolved]
  - Incorrect product administration duration [Unknown]
  - Application site pain [Not Recovered/Not Resolved]
  - Influenza [Not Recovered/Not Resolved]
  - Application site erythema [Not Recovered/Not Resolved]
